FAERS Safety Report 25524109 (Version 1)
Quarter: 2025Q3

REPORT INFORMATION
  Report Type: Spontaneous
  Country: US (occurrence: None)
  Receive Date: 20250704
  Receipt Date: 20250704
  Transmission Date: 20251020
  Serious: Yes (Other)
  Sender: FDA-CTU
  Company Number: None

PATIENT
  Age: 57 Year
  Sex: Female
  Weight: 83.25 kg

DRUGS (1)
  1. ACETAMINOPHEN [Suspect]
     Active Substance: ACETAMINOPHEN
     Indication: Arthralgia
     Dosage: OTHER QUANTITY : 99999 TABLET(S)?FREQUENCY : EVERY 4 HOURS?
     Route: 048
     Dates: start: 20250217, end: 20250217

REACTIONS (2)
  - Pyrexia [None]
  - Diarrhoea [None]

NARRATIVE: CASE EVENT DATE: 20250217
